FAERS Safety Report 9169720 (Version 1)
Quarter: 2013Q1

REPORT INFORMATION
  Report Type: Spontaneous
  Country: CH (occurrence: CH)
  Receive Date: 20130318
  Receipt Date: 20130318
  Transmission Date: 20140127
  Serious: Yes (Congenital Anomaly)
  Sender: FDA-Public Use
  Company Number: PHHY2013CH025443

PATIENT
  Sex: Male
  Weight: 3.63 kg

DRUGS (4)
  1. METFORMIN [Suspect]
     Indication: DIABETES MELLITUS
     Route: 064
  2. ATORVASTATIN [Suspect]
     Route: 064
  3. NOVORAPID [Concomitant]
     Route: 064
  4. INSULIN DETEMIR [Concomitant]
     Route: 064

REACTIONS (2)
  - Finger deformity [Unknown]
  - Foetal exposure during pregnancy [Unknown]
